FAERS Safety Report 24753889 (Version 1)
Quarter: 2024Q4

REPORT INFORMATION
  Report Type: Spontaneous
  Country: US (occurrence: US)
  Receive Date: 20241219
  Receipt Date: 20241219
  Transmission Date: 20250115
  Serious: No
  Sender: QUAGEN PHARMACEUTICALS
  Company Number: US-QUAGEN-2024QUASPO00493

PATIENT

DRUGS (1)
  1. LEVETIRACETAM [Suspect]
     Active Substance: LEVETIRACETAM
     Indication: Epilepsy
     Route: 065

REACTIONS (3)
  - Nausea [Not Recovered/Not Resolved]
  - Memory impairment [Not Recovered/Not Resolved]
  - Headache [Not Recovered/Not Resolved]
